FAERS Safety Report 4530769-7 (Version None)
Quarter: 2004Q4

REPORT INFORMATION
  Report Type: 
  Country: None (occurrence: None)
  Receive Date: 20041216
  Receipt Date: 20041126
  Transmission Date: 20050328
  Serious: Yes (Other)
  Sender: FDA-Public Use
  Company Number: GBS040915669

PATIENT
  Age: 21 Week
  Sex: Female
  Weight: 3 kg

DRUGS (6)
  1. OLANZAPINE [Suspect]
     Dates: start: 20030624
  2. FOLIC ACID [Concomitant]
  3. NICORETTE [Concomitant]
  4. NICORETTE [Concomitant]
  5. CO-PROXAMOL [Concomitant]
  6. CODEINE PHOSPHATE [Concomitant]

REACTIONS (3)
  - CONVULSION [None]
  - DRUG EXPOSURE DURING PREGNANCY [None]
  - DYSKINESIA [None]
